FAERS Safety Report 10340874 (Version 2)
Quarter: 2014Q3

REPORT INFORMATION
  Report Type: Spontaneous
  Country: US (occurrence: US)
  Receive Date: 20140724
  Receipt Date: 20140724
  Transmission Date: 20150326
  Serious: No
  Sender: FDA-Public Use
  Company Number: US-MYLANLABS-2013S1012317

PATIENT
  Sex: Female

DRUGS (1)
  1. LEVOTHYROXINE SODIUM TABLETS, USP [Suspect]
     Active Substance: LEVOTHYROXINE SODIUM
     Dates: start: 2003

REACTIONS (7)
  - Pruritus [Recovered/Resolved]
  - Mood swings [Recovered/Resolved]
  - Alopecia [Recovered/Resolved]
  - Thyroid function test abnormal [Recovered/Resolved]
  - Unevaluable event [Recovered/Resolved]
  - Depression [Recovered/Resolved]
  - Rash [Recovered/Resolved]

NARRATIVE: CASE EVENT DATE: 2003
